FAERS Safety Report 21421614 (Version 1)
Quarter: 2022Q4

REPORT INFORMATION
  Report Type: Spontaneous
  Country: PH (occurrence: PH)
  Receive Date: 20221007
  Receipt Date: 20221007
  Transmission Date: 20230113
  Serious: Yes (Death, Hospitalization, Other)
  Sender: FDA-Public Use
  Company Number: PH-ASTELLAS-2022US035508

PATIENT
  Sex: Male

DRUGS (1)
  1. XTANDI [Suspect]
     Active Substance: ENZALUTAMIDE
     Indication: Hormone-refractory prostate cancer
     Route: 048
     Dates: start: 202206

REACTIONS (4)
  - Sepsis [Fatal]
  - Prostatic haemorrhage [Unknown]
  - Pain [Unknown]
  - Inappropriate schedule of product administration [Unknown]

NARRATIVE: CASE EVENT DATE: 20220601
